FAERS Safety Report 23995077 (Version 1)
Quarter: 2024Q2

REPORT INFORMATION
  Report Type: Spontaneous
  Country: US (occurrence: None)
  Receive Date: 20240619
  Receipt Date: 20240619
  Transmission Date: 20240716
  Serious: Yes (Other)
  Sender: FDA-Public Use
  Company Number: None

PATIENT
  Age: 78 Year
  Sex: Female
  Weight: 66.68 kg

DRUGS (1)
  1. DOXYCYCLINE [Suspect]
     Active Substance: DOXYCYCLINE\DOXYCYCLINE HYCLATE

REACTIONS (10)
  - Paraesthesia [None]
  - Paraesthesia [None]
  - Nerve injury [None]
  - Hypoaesthesia [None]
  - Pain [None]
  - Insomnia [None]
  - Hypoaesthesia [None]
  - Palpitations [None]
  - Stress [None]
  - Balance disorder [None]

NARRATIVE: CASE EVENT DATE: 20230906
